FAERS Safety Report 8592984 (Version 3)
Quarter: 2013Q2

REPORT INFORMATION
  Report Type: Spontaneous
  Country: US (occurrence: US)
  Receive Date: 20120604
  Receipt Date: 20130617
  Transmission Date: 20140414
  Serious: Yes (Hospitalization, Disabling, Other)
  Sender: FDA-Public Use
  Company Number: US-ASTRAZENECA-2012SE34775

PATIENT
  Age: 51 Year
  Sex: Female

DRUGS (1)
  1. NEXIUM [Suspect]
     Dosage: ONE TIME A DAY
     Route: 048

REACTIONS (13)
  - Ill-defined disorder [Unknown]
  - Cardiac disorder [Unknown]
  - Bone neoplasm [Unknown]
  - Osteoporosis [Unknown]
  - Multiple fractures [Unknown]
  - Bone pain [Unknown]
  - Pain in extremity [Unknown]
  - Gout [Unknown]
  - Osteogenesis imperfecta [Unknown]
  - Arthritis [Unknown]
  - Diabetes mellitus [Unknown]
  - Glaucoma [Unknown]
  - Depression [Unknown]
